FAERS Safety Report 7833433-1 (Version None)
Quarter: 2011Q4

REPORT INFORMATION
  Report Type: 
  Country: None (occurrence: None)
  Receive Date: 20111024
  Receipt Date: 20111018
  Transmission Date: 20120403
  Serious: Yes (Other)
  Sender: FDA-Public Use
  Company Number: US-VERTEX PHARMACEUTICALS INC.-AE-2011-002430

PATIENT

DRUGS (4)
  1. INTERFERON ALFA-2A [Concomitant]
     Indication: HEPATITIS C
  2. INCIVEK [Suspect]
     Indication: HEPATITIS C
  3. RIBAVIRIN [Concomitant]
     Indication: HEPATITIS C
  4. EPOETIN ALFA [Concomitant]
     Indication: HEPATITIS C

REACTIONS (1)
  - PULMONARY EMBOLISM [None]
